FAERS Safety Report 8574884-X (Version None)
Quarter: 2012Q3

REPORT INFORMATION
  Report Type: 
  Country: None (occurrence: None)
  Receive Date: 20120807
  Receipt Date: 20120801
  Transmission Date: 20120928
  Serious: Yes (Hospitalization)
  Sender: FDA-Public Use
  Company Number: US-009507513-1208USA001726

PATIENT

DRUGS (6)
  1. DOXYCYCLINE HCL [Concomitant]
  2. PRIMAXIN [Suspect]
     Indication: ENDOCARDITIS BACTERIAL
     Dosage: UNK
     Route: 042
  3. GENTAMICIN [Suspect]
     Indication: ENDOCARDITIS BACTERIAL
     Dosage: UNK, QD
  4. METRONIDAZOLE [Concomitant]
  5. CIPROFLOXACIN [Concomitant]
  6. CEFTRIAXONE SODIUM [Concomitant]

REACTIONS (1)
  - DRUG INEFFECTIVE [None]
